FAERS Safety Report 25017779 (Version 1)
Quarter: 2025Q1

REPORT INFORMATION
  Report Type: Spontaneous
  Country: US (occurrence: None)
  Receive Date: 20250226
  Receipt Date: 20250226
  Transmission Date: 20250409
  Serious: Yes (Disabling)
  Sender: FDA-CTU
  Company Number: None

PATIENT
  Age: 37 Year
  Sex: Female
  Weight: 92.25 kg

DRUGS (2)
  1. VUEWAY [Suspect]
     Active Substance: GADOPICLENOL
     Indication: Scan with contrast
     Dates: start: 20241231
  2. Daily women^s multivitamin [Concomitant]

REACTIONS (32)
  - Infusion related reaction [None]
  - Infusion site coldness [None]
  - Dysgeusia [None]
  - Headache [None]
  - Dizziness [None]
  - Abdominal discomfort [None]
  - Pollakiuria [None]
  - Pain in extremity [None]
  - Muscle twitching [None]
  - Chest discomfort [None]
  - Heart rate increased [None]
  - Tinnitus [None]
  - Upper-airway cough syndrome [None]
  - Viral infection [None]
  - Hypoaesthesia [None]
  - Paraesthesia [None]
  - Migraine [None]
  - Abdominal pain upper [None]
  - Loss of personal independence in daily activities [None]
  - Muscle disorder [None]
  - Tenderness [None]
  - Brain fog [None]
  - Memory impairment [None]
  - Cognitive disorder [None]
  - Impaired driving ability [None]
  - Memory impairment [None]
  - Arthralgia [None]
  - Arthralgia [None]
  - Rash [None]
  - Hyperhidrosis [None]
  - Cold sweat [None]
  - Musculoskeletal stiffness [None]

NARRATIVE: CASE EVENT DATE: 20241231
